FAERS Safety Report 7441430-3 (Version None)
Quarter: 2011Q2

REPORT INFORMATION
  Report Type: 
  Country: None (occurrence: None)
  Receive Date: 20110428
  Receipt Date: 20110418
  Transmission Date: 20111010
  Serious: Yes (Other)
  Sender: FDA-Public Use
  Company Number: US-ASTRAZENECA-2007UW25630

PATIENT
  Age: 19484 Day
  Sex: Female
  Weight: 72.6 kg

DRUGS (7)
  1. SEROQUEL [Suspect]
     Indication: DEPRESSION
     Dosage: 25 MG-150 MG
     Route: 048
     Dates: start: 20021101, end: 20060101
  2. SEROQUEL [Suspect]
     Indication: BIPOLAR DISORDER
     Dosage: 25 MG-150 MG
     Route: 048
     Dates: start: 20021101, end: 20060101
  3. MYSTOLYIC [Concomitant]
  4. SEROQUEL [Suspect]
     Indication: SLEEP DISORDER
     Dosage: 25 MG-150 MG
     Route: 048
     Dates: start: 20021101, end: 20060101
  5. HALDOL [Concomitant]
  6. NAPROXEN [Concomitant]
  7. CRESTOR [Concomitant]

REACTIONS (2)
  - DIABETIC NEUROPATHY [None]
  - TYPE 2 DIABETES MELLITUS [None]
